FAERS Safety Report 4526135-0 (Version None)
Quarter: 2004Q4

REPORT INFORMATION
  Report Type: 
  Country: None (occurrence: None)
  Receive Date: 20041213
  Receipt Date: 20041213
  Transmission Date: 20050328
  Serious: Yes (Other)
  Sender: FDA-Public Use
  Company Number: None

PATIENT
  Age: 26 Year
  Sex: Female
  Weight: 77.1115 kg

DRUGS (2)
  1. CORICIDIN D SRT [Suspect]
     Indication: HYPERSENSITIVITY
     Dosage: 2 PILLS ORAL
     Route: 048
     Dates: start: 20001031, end: 20001031
  2. ORAL CONTRACEPTIVE (NOS) [Concomitant]

REACTIONS (1)
  - ISCHAEMIC STROKE [None]
